FAERS Safety Report 12855692 (Version 1)
Quarter: 2016Q4

REPORT INFORMATION
  Report Type: Spontaneous
  Country: FR (occurrence: FR)
  Receive Date: 20161017
  Receipt Date: 20161017
  Transmission Date: 20170207
  Serious: Yes (Hospitalization)
  Sender: FDA-Public Use
  Company Number: FR-009507513-1607FRA009619

PATIENT
  Age: 48 Year
  Sex: Female

DRUGS (3)
  1. KEYTRUDA [Suspect]
     Active Substance: PEMBROLIZUMAB
     Indication: MALIGNANT MELANOMA
     Dosage: 1 IN 1CYCLE
     Route: 042
     Dates: start: 20160406
  2. KEYTRUDA [Suspect]
     Active Substance: PEMBROLIZUMAB
     Indication: METASTASES TO LUNG
  3. KEYTRUDA [Suspect]
     Active Substance: PEMBROLIZUMAB
     Indication: METASTATIC MALIGNANT MELANOMA

REACTIONS (2)
  - Eosinophilic bronchitis [Not Recovered/Not Resolved]
  - Eosinophilia [Not Recovered/Not Resolved]

NARRATIVE: CASE EVENT DATE: 20160725
